FAERS Safety Report 5976372-3 (Version None)
Quarter: 2008Q4

REPORT INFORMATION
  Report Type: 
  Country: None (occurrence: None)
  Receive Date: 20081202
  Receipt Date: 20081111
  Transmission Date: 20090506
  Serious: No
  Sender: FDA-Public Use
  Company Number: US-B.I. PHARMACEUTICALS,INC./RIDGEFIELD-2008-BP-16189BP

PATIENT
  Age: 94 Year
  Sex: Female
  Weight: 58 kg

DRUGS (5)
  1. MIRAPEX [Suspect]
     Indication: RESTLESS LEGS SYNDROME
     Dosage: .125MG
     Dates: start: 20080608
  2. TOPROL-XL [Concomitant]
     Dosage: 100MG
  3. DETROL LA [Concomitant]
     Dosage: 4MG
  4. PLAVIX [Concomitant]
     Dosage: 75MG
  5. NORVASC [Concomitant]
     Dosage: 5MG

REACTIONS (4)
  - ABNORMAL DREAMS [None]
  - CONFUSIONAL STATE [None]
  - DISORIENTATION [None]
  - NIGHTMARE [None]
